FAERS Safety Report 6645726-4 (Version None)
Quarter: 2010Q1

REPORT INFORMATION
  Report Type: 
  Country: None (occurrence: None)
  Receive Date: 20100318
  Receipt Date: 20100318
  Transmission Date: 20100710
  Serious: Yes (Hospitalization)
  Sender: FDA-Public Use
  Company Number: None

PATIENT
  Sex: Male
  Weight: 59.3 kg

DRUGS (7)
  1. FLUOROURACIL [Suspect]
     Dosage: 6500 MG
     Dates: end: 20100219
  2. CISPLATIN [Suspect]
     Dosage: 165 MG
     Dates: end: 20100215
  3. COZAAR [Concomitant]
  4. DEMECLOCYCLINE HCL [Concomitant]
  5. IPRATROPIUM BROMIDE [Concomitant]
  6. LYRICA [Concomitant]
  7. PERCOCET [Concomitant]

REACTIONS (3)
  - FEBRILE NEUTROPENIA [None]
  - HYPOKALAEMIA [None]
  - THROMBOCYTOPENIA [None]
